FAERS Safety Report 17422851 (Version 2)
Quarter: 2020Q1

REPORT INFORMATION
  Report Type: Spontaneous
  Country: JP (occurrence: JP)
  Receive Date: 20200215
  Receipt Date: 20200227
  Transmission Date: 20200409
  Serious: Yes (Other)
  Sender: FDA-Public Use
  Company Number: NVSJ2020JP001785

PATIENT
  Age: 72 Year
  Sex: Male
  Weight: 83.5 kg

DRUGS (9)
  1. NEORAL [Suspect]
     Active Substance: CYCLOSPORINE
     Dosage: 150 MG
     Route: 048
  2. TALION [Concomitant]
     Indication: DERMATITIS
     Dosage: 20 MG
     Route: 048
  3. LECTISOL [Concomitant]
     Active Substance: DAPSONE
     Indication: DERMATITIS
     Dosage: 50 MG
     Route: 048
  4. NEORAL [Suspect]
     Active Substance: CYCLOSPORINE
     Dosage: 75 MG
     Route: 048
  5. PROTOPIC [Concomitant]
     Active Substance: TACROLIMUS
     Indication: DERMATITIS
     Dosage: UNK
     Route: 065
  6. NEORAL [Suspect]
     Active Substance: CYCLOSPORINE
     Indication: DERMATITIS
     Dosage: 150 MG
     Route: 048
  7. NEORAL [Suspect]
     Active Substance: CYCLOSPORINE
     Dosage: 100 MG
     Route: 048
  8. NEORAL [Suspect]
     Active Substance: CYCLOSPORINE
     Dosage: 100 MG
     Route: 048
  9. NEORAL [Suspect]
     Active Substance: CYCLOSPORINE
     Dosage: 150 MG
     Route: 048

REACTIONS (19)
  - Erythema multiforme [Unknown]
  - Dysstasia [Unknown]
  - Tinnitus [Unknown]
  - Rash [Recovering/Resolving]
  - Erythema [Recovering/Resolving]
  - Papule [Unknown]
  - Pain [Unknown]
  - Skin exfoliation [Unknown]
  - Headache [Unknown]
  - Blood creatine phosphokinase increased [Unknown]
  - Blister [Unknown]
  - Rhabdomyolysis [Unknown]
  - Skin burning sensation [Unknown]
  - Skin weeping [Recovering/Resolving]
  - Back pain [Unknown]
  - Myalgia [Unknown]
  - Dizziness [Unknown]
  - Pruritus [Unknown]
  - Rash vesicular [Unknown]
